FAERS Safety Report 9240647 (Version 1)
Quarter: 2013Q2

REPORT INFORMATION
  Report Type: Spontaneous
  Country: US (occurrence: US)
  Receive Date: 20130418
  Receipt Date: 20130418
  Transmission Date: 20140414
  Serious: Yes (Other)
  Sender: FDA-Public Use
  Company Number: US-SANOFI-AVENTIS-2012SA082410

PATIENT
  Age: 33 Year
  Sex: Female

DRUGS (1)
  1. ENOXAPARIN SODIUM [Suspect]
     Indication: THROMBOSIS
     Route: 065
     Dates: start: 201210, end: 20121103

REACTIONS (5)
  - Uterine haemorrhage [Recovered/Resolved]
  - Exposure during pregnancy [Unknown]
  - Vomiting [Unknown]
  - Haematemesis [Unknown]
  - Malaise [Unknown]
